FAERS Safety Report 12160427 (Version 1)
Quarter: 2016Q1

REPORT INFORMATION
  Report Type: Spontaneous
  Country: US (occurrence: US)
  Receive Date: 20160308
  Receipt Date: 20160308
  Transmission Date: 20160526
  Serious: No
  Sender: FDA-Public Use
  Company Number: US-PFIZER INC-2016081293

PATIENT
  Age: 51 Year
  Sex: Female
  Weight: 70 kg

DRUGS (3)
  1. CHANTIX [Suspect]
     Active Substance: VARENICLINE TARTRATE
     Dosage: 0.5 MG, 2X/DAY, 1/2 MG IN THE AM AND 1/2 MG IN THE EVENING
     Dates: start: 20160205, end: 20160208
  2. CHANTIX [Suspect]
     Active Substance: VARENICLINE TARTRATE
     Dosage: 1 MG, UNK
     Dates: start: 20160209
  3. CHANTIX [Suspect]
     Active Substance: VARENICLINE TARTRATE
     Indication: SMOKING CESSATION THERAPY
     Dosage: 0.5 MG, 1X/DAY, IN THE MORNING
     Dates: start: 20160202, end: 20160204

REACTIONS (9)
  - Emotional disorder [Unknown]
  - Emotional distress [Unknown]
  - Depressed mood [Unknown]
  - Mood swings [Unknown]
  - Vomiting [Not Recovered/Not Resolved]
  - Decreased appetite [Not Recovered/Not Resolved]
  - Tobacco withdrawal symptoms [Not Recovered/Not Resolved]
  - Nightmare [Unknown]
  - Nausea [Not Recovered/Not Resolved]

NARRATIVE: CASE EVENT DATE: 201602
